FAERS Safety Report 9214941 (Version 1)
Quarter: 2013Q2

REPORT INFORMATION
  Report Type: Spontaneous
  Country: FR (occurrence: FR)
  Receive Date: 20130405
  Receipt Date: 20130405
  Transmission Date: 20140414
  Serious: Yes (Hospitalization)
  Sender: FDA-Public Use
  Company Number: FR-GLAXOSMITHKLINE-B0879374A

PATIENT
  Age: 62 Year
  Sex: Male

DRUGS (9)
  1. BETNEVAL [Suspect]
     Indication: ECZEMA
     Dosage: 1APP SINGLE DOSE
     Route: 061
     Dates: start: 20130108, end: 20130108
  2. ATENOLOL [Concomitant]
     Dosage: 1UNIT TWICE PER DAY
     Route: 048
  3. KARDEGIC [Concomitant]
     Dosage: 1UNIT PER DAY
     Route: 048
  4. RAMIPRIL [Concomitant]
     Dosage: 1.25MG TWICE PER DAY
     Route: 048
  5. TAHOR [Concomitant]
     Dosage: 10MG PER DAY
     Route: 048
  6. JOSIR [Concomitant]
     Dosage: .4MG PER DAY
     Route: 048
  7. LEXOMIL [Concomitant]
     Dosage: 1TAB PER DAY
     Route: 048
  8. DAFALGAN CODEINE [Concomitant]
     Indication: PAIN
     Route: 048
  9. GAVISCON [Concomitant]
     Dosage: 1UNIT THREE TIMES PER DAY
     Route: 048

REACTIONS (5)
  - Skin irritation [Recovered/Resolved]
  - Pruritus [Recovered/Resolved]
  - Tongue oedema [Recovered/Resolved]
  - Dysphagia [Recovered/Resolved]
  - Hypersensitivity [Recovered/Resolved]
